FAERS Safety Report 24054149 (Version 2)
Quarter: 2024Q3

REPORT INFORMATION
  Report Type: Spontaneous
  Country: US (occurrence: US)
  Receive Date: 20240705
  Receipt Date: 20240801
  Transmission Date: 20241016
  Serious: Yes (Other)
  Sender: JOHNSON AND JOHNSON
  Company Number: US-JNJFOC-20240678771

PATIENT
  Age: 83 Year
  Sex: Male

DRUGS (3)
  1. ERLEADA [Suspect]
     Active Substance: APALUTAMIDE
     Indication: Product used for unknown indication
     Route: 048
  2. ORGOVYX [Suspect]
     Active Substance: RELUGOLIX
     Indication: Prostate cancer
     Dosage: START DATE: ON 18-FEB-2023 WITH BIOLOGICS
     Route: 048
  3. ORGOVYX [Suspect]
     Active Substance: RELUGOLIX
     Dosage: START DATE: ON 18-FEB-2023 WITH BIOLOGICS
     Route: 048
     Dates: end: 20240521

REACTIONS (11)
  - Angina pectoris [Unknown]
  - Arterial occlusive disease [Unknown]
  - Sluggishness [Unknown]
  - Incorrect dosage administered [Unknown]
  - Blood potassium decreased [Unknown]
  - Constipation [Unknown]
  - Fatigue [Unknown]
  - Diarrhoea [Unknown]
  - Mood altered [Unknown]
  - Feeling abnormal [Unknown]
  - Listless [Unknown]
